FAERS Safety Report 16919016 (Version 1)
Quarter: 2019Q4

REPORT INFORMATION
  Report Type: Spontaneous
  Country: US (occurrence: US)
  Receive Date: 20191014
  Receipt Date: 20191014
  Transmission Date: 20200122
  Serious: No
  Sender: FDA-Public Use
  Company Number: None

PATIENT
  Age: 68 Year
  Sex: Male
  Weight: 69.75 kg

DRUGS (8)
  1. QUINAPRIL. [Concomitant]
     Active Substance: QUINAPRIL
  2. MAGOX [Concomitant]
  3. ELIQUIS [Concomitant]
     Active Substance: APIXABAN
  4. MULTIVITAMIN [Concomitant]
     Active Substance: VITAMINS
  5. ELIQUIS [Suspect]
     Active Substance: APIXABAN
     Indication: HEART VALVE REPLACEMENT
     Dates: start: 20180820, end: 20191014
  6. CYCLOSPORINE. [Concomitant]
     Active Substance: CYCLOSPORINE
  7. AZATHIOPRINE. [Concomitant]
     Active Substance: AZATHIOPRINE
  8. GLUCOSAMINE CHONDROITIN [Concomitant]
     Active Substance: CHONDROITIN SULFATE (BOVINE)\GLUCOSAMINE HYDROCHLORIDE

REACTIONS (1)
  - Contusion [None]

NARRATIVE: CASE EVENT DATE: 20180821
